FAERS Safety Report 9681953 (Version 2)
Quarter: 2013Q4

REPORT INFORMATION
  Report Type: Spontaneous
  Country: US (occurrence: US)
  Receive Date: 20131111
  Receipt Date: 20131210
  Transmission Date: 20140711
  Serious: Yes (Hospitalization)
  Sender: FDA-Public Use
  Company Number: US-PFIZER INC-2013320617

PATIENT
  Age: 31 Year
  Sex: Male
  Weight: 163 kg

DRUGS (3)
  1. LYRICA [Suspect]
     Indication: NEURALGIA
     Dosage: UNK, 2X/DAY
     Dates: start: 201310
  2. INSULIN [Concomitant]
     Indication: DIABETES MELLITUS
     Dosage: UNK, 2X/DAY
  3. GLIPIZIDE [Concomitant]
     Indication: DIABETES MELLITUS
     Dosage: 7.5 MG, 2X/DAY

REACTIONS (2)
  - Foot fracture [Unknown]
  - Gait disturbance [Unknown]
